FAERS Safety Report 9051895 (Version 6)
Quarter: 2014Q1

REPORT INFORMATION
  Report Type: Spontaneous
  Country: AR (occurrence: AR)
  Receive Date: 20130207
  Receipt Date: 20140122
  Transmission Date: 20141002
  Serious: Yes (Other)
  Sender: FDA-Public Use
  Company Number: AR-AMGEN-ARGSP2013008477

PATIENT
  Sex: Female

DRUGS (1)
  1. PROLIA [Suspect]
     Indication: OSTEITIS DEFORMANS
     Dosage: 60MG UNKNOWN
     Route: 042
     Dates: start: 201204

REACTIONS (5)
  - Mouth haemorrhage [Unknown]
  - Oral pain [Unknown]
  - Exposed bone in jaw [Not Recovered/Not Resolved]
  - Oral disorder [Unknown]
  - Osteonecrosis of jaw [Recovering/Resolving]
